FAERS Safety Report 7982388-8 (Version None)
Quarter: 2011Q4

REPORT INFORMATION
  Report Type: 
  Country: None (occurrence: None)
  Receive Date: 20111214
  Receipt Date: 20111214
  Transmission Date: 20120403
  Serious: Yes (Hospitalization)
  Sender: FDA-Public Use
  Company Number: None

PATIENT
  Sex: Male
  Weight: 120 kg

DRUGS (9)
  1. BELATACEPT 250 MG VIALS - BRISTOL-MYERS SQUIBB [Suspect]
     Indication: IMMUNOSUPPRESSION
     Dosage: 5 MG/KG
     Dates: start: 20100312
  2. SINGULAIR [Concomitant]
  3. MYCOPHENOLATE MOFETIL (CELLCEPT) [Concomitant]
  4. TRAZODONE HCL [Concomitant]
  5. FLUTICASONE PROPIONATE [Concomitant]
  6. PROCARDIA XL [Concomitant]
  7. TOPROL-XL [Concomitant]
  8. PRAVACHOL [Concomitant]
  9. MULTI-VITAMIN [Concomitant]

REACTIONS (2)
  - CORONARY ARTERY OCCLUSION [None]
  - ACUTE MYOCARDIAL INFARCTION [None]
